FAERS Safety Report 6720527-7 (Version None)
Quarter: 2010Q2

REPORT INFORMATION
  Report Type: 
  Country: None (occurrence: None)
  Receive Date: 20100511
  Receipt Date: 20100511
  Transmission Date: 20101027
  Serious: Yes (Hospitalization)
  Sender: FDA-Public Use
  Company Number: None

PATIENT
  Sex: Female
  Weight: 62.4 kg

DRUGS (2)
  1. CISPLATIN [Suspect]
     Dosage: 85 MG
     Dates: end: 20100326
  2. TAXOL [Suspect]
     Dosage: 298 MG
     Dates: end: 20100326

REACTIONS (2)
  - DISEASE PROGRESSION [None]
  - PULMONARY EMBOLISM [None]
